FAERS Safety Report 7595358-9 (Version None)
Quarter: 2011Q3

REPORT INFORMATION
  Report Type: 
  Country: None (occurrence: None)
  Receive Date: 20110707
  Receipt Date: 20110630
  Transmission Date: 20111222
  Serious: Yes (Other)
  Sender: FDA-Public Use
  Company Number: GB-PFIZER INC-2011147313

PATIENT
  Age: 52 Year
  Sex: Male
  Weight: 76 kg

DRUGS (10)
  1. FORMOTEROL FUMARATE [Concomitant]
     Dosage: UNK
     Dates: start: 20110222, end: 20110513
  2. BECLOMETASONE [Concomitant]
     Dosage: UNK
     Dates: start: 20110619, end: 20110619
  3. DOXYCYCLINE HYCLATE [Suspect]
     Dosage: UNK
     Dates: start: 20110619
  4. AMOXICILLIN [Concomitant]
     Dosage: UNK
     Dates: start: 20110620
  5. TIMODINE ^LLOYD^ [Concomitant]
     Dosage: UNK
     Dates: start: 20110620
  6. FLUCLOXACILLIN [Concomitant]
     Dosage: UNK
     Dates: start: 20110515, end: 20110522
  7. MOMETASONE FUROATE [Concomitant]
     Dosage: UNK
     Dates: start: 20110619
  8. TERBUTALINE [Concomitant]
     Dosage: UNK
     Dates: start: 20110222, end: 20110322
  9. BUDESONIDE [Concomitant]
     Dosage: UNK
     Dates: start: 20110222, end: 20110513
  10. ISOPROPYL MYRISTATE AND PARAFFIN, LIQUID [Concomitant]
     Dosage: UNK
     Dates: start: 20110330, end: 20110513

REACTIONS (1)
  - BALANITIS [None]
